FAERS Safety Report 6775201-8 (Version None)
Quarter: 2010Q2

REPORT INFORMATION
  Report Type: 
  Country: None (occurrence: None)
  Receive Date: 20100617
  Receipt Date: 20100608
  Transmission Date: 20101027
  Serious: No
  Sender: FDA-Public Use
  Company Number: BR-EISAI INC.-E3810-03869-SPO-BR

PATIENT
  Age: 21 Year
  Sex: Male

DRUGS (2)
  1. PARIET (RABEPRAZOLE) [Suspect]
     Indication: GASTRITIS
     Dosage: UNKNOWN
     Route: 048
     Dates: start: 20100602, end: 20100601
  2. TRILEPTAL [Interacting]
     Indication: EPILEPSY
     Route: 065

REACTIONS (2)
  - CONVULSION [None]
  - DRUG INTERACTION [None]
